FAERS Safety Report 7743646-5 (Version None)
Quarter: 2011Q3

REPORT INFORMATION
  Report Type: 
  Country: None (occurrence: None)
  Receive Date: 20110912
  Receipt Date: 20110831
  Transmission Date: 20111222
  Serious: Yes (Hospitalization, Disabling, Other)
  Sender: FDA-Public Use
  Company Number: US-MERCK-1106USA02215

PATIENT
  Age: 54 Year
  Sex: Female
  Weight: 82 kg

DRUGS (5)
  1. FOSAMAX [Suspect]
     Indication: OSTEOPENIA
     Route: 048
     Dates: start: 20020930, end: 20040518
  2. FOSAMAX [Suspect]
     Route: 048
     Dates: start: 20090916
  3. ACTONEL [Suspect]
     Route: 065
  4. ALENDRONATE SODIUM [Suspect]
     Indication: OSTEOPENIA
     Route: 048
     Dates: start: 20090602, end: 20101026
  5. BONIVA [Suspect]
     Route: 065
     Dates: start: 20070216

REACTIONS (38)
  - FALL [None]
  - CLOSTRIDIUM DIFFICILE COLITIS [None]
  - DIVERTICULITIS [None]
  - PAIN IN EXTREMITY [None]
  - PARANASAL SINUS HYPERSECRETION [None]
  - FEMUR FRACTURE [None]
  - ADRENAL MASS [None]
  - INTERVERTEBRAL DISC PROTRUSION [None]
  - COLITIS [None]
  - INTERVERTEBRAL DISC DEGENERATION [None]
  - NEUROPATHY PERIPHERAL [None]
  - AORTIC STENOSIS [None]
  - BONE PAIN [None]
  - ARTHRALGIA [None]
  - LIPIDS INCREASED [None]
  - STEROID THERAPY [None]
  - PATELLA FRACTURE [None]
  - OSTEOARTHRITIS [None]
  - DIVERTICULUM [None]
  - SPINAL DISORDER [None]
  - HEPATIC STEATOSIS [None]
  - TOOTH DISORDER [None]
  - BACK PAIN [None]
  - CORONARY ARTERY DISEASE [None]
  - DIZZINESS [None]
  - NODULE [None]
  - INTERVERTEBRAL DISC SPACE NARROWING [None]
  - RADICULOPATHY [None]
  - EYELID PTOSIS [None]
  - PELVIC PAIN [None]
  - DEPRESSION [None]
  - ARTHROPATHY [None]
  - LOW TURNOVER OSTEOPATHY [None]
  - HYPOTENSION [None]
  - BLOOD CHOLESTEROL INCREASED [None]
  - HYPERTENSION [None]
  - STRESS FRACTURE [None]
  - RECTAL HAEMORRHAGE [None]
